FAERS Safety Report 8923538 (Version 2)
Quarter: 2012Q4

REPORT INFORMATION
  Report Type: 
  Country: JP (occurrence: JP)
  Receive Date: 20121124
  Receipt Date: 20121231
  Transmission Date: 20130627
  Serious: Yes (Other)
  Sender: FDA-Public Use
  Company Number: JP-009507513-2012SP032461

PATIENT
  Age: 67 Year
  Sex: Male
  Weight: 68 kg

DRUGS (14)
  1. PEGINTRON [Suspect]
     Indication: CHRONIC HEPATITIS C
     Dosage: 1.5 Microgram per kilogram, qw
     Route: 058
     Dates: start: 20120405, end: 20120516
  2. REBETOL [Suspect]
     Indication: CHRONIC HEPATITIS C
     Dosage: 600 mg, QD
     Route: 048
     Dates: start: 20120405, end: 20120522
  3. TELAVIC [Suspect]
     Indication: CHRONIC HEPATITIS C
     Dosage: 1500 mg, QD
     Route: 048
     Dates: start: 20120405, end: 20120522
  4. RHYTHMY [Concomitant]
     Indication: PROPHYLAXIS
     Dosage: 2 mg per day, prn : Formulation; POR
     Route: 048
     Dates: start: 20120403
  5. LOXONIN [Concomitant]
     Dosage: AS NEEDED
     Route: 048
     Dates: end: 20120406
  6. ANTEBATE [Concomitant]
     Dosage: q.s/day
     Route: 061
     Dates: start: 20120409
  7. ANTEBATE [Concomitant]
     Dosage: q.s/day
     Route: 061
     Dates: start: 20120419
  8. PYRINAZIN [Concomitant]
     Dosage: 0.50 g/day, prn
     Route: 048
     Dates: start: 20120409
  9. ALLELOCK [Concomitant]
     Dosage: IN TWO DOSES
     Route: 048
     Dates: start: 20120419
  10. MUCOSTA [Concomitant]
     Dosage: 100 mg qd prn
     Route: 048
     Dates: start: 20120419
  11. GASTER [Concomitant]
     Dosage: 40 mg qd, in two doses
     Route: 048
     Dates: start: 20120419
  12. ORADOL [Concomitant]
     Dosage: IN THREE DOSES
     Route: 048
     Dates: start: 20120419
  13. LOCOID [Concomitant]
     Dosage: q.s/day
     Route: 061
     Dates: start: 20120419
  14. INTEBAN [Concomitant]
     Dosage: 25 mg/day, as needed
     Route: 061
     Dates: start: 20120419

REACTIONS (3)
  - Thirst [Recovered/Resolved]
  - Decreased appetite [Recovered/Resolved]
  - Malaise [Recovered/Resolved]
